FAERS Safety Report 10731003 (Version 1)
Quarter: 2015Q1

REPORT INFORMATION
  Report Type: Spontaneous
  Country: US (occurrence: None)
  Receive Date: 20150120
  Receipt Date: 20150120
  Transmission Date: 20150721
  Serious: Yes (Other)
  Sender: FDA-Public Use
  Company Number: None

PATIENT
  Age: 64 Year
  Sex: Female
  Weight: 65.77 kg

DRUGS (1)
  1. RANEXA [Suspect]
     Active Substance: RANOLAZINE
     Indication: ANGINA PECTORIS
     Dosage: 2 PILLS, TWICE DAILY, TAKEN BY MOUTH
     Route: 048
     Dates: start: 20140131, end: 20150116

REACTIONS (7)
  - Angina pectoris [None]
  - Dizziness [None]
  - Hypotonia [None]
  - Eyelid disorder [None]
  - Balance disorder [None]
  - Abasia [None]
  - Tremor [None]

NARRATIVE: CASE EVENT DATE: 20150114
